FAERS Safety Report 20808296 (Version 5)
Quarter: 2023Q1

REPORT INFORMATION
  Report Type: Report from Study
  Country: US (occurrence: US)
  Receive Date: 20220510
  Receipt Date: 20230123
  Transmission Date: 20230417
  Serious: Yes (Other)
  Sender: FDA-Public Use
  Company Number: US-GLAXOSMITHKLINE-US2022AMR038819

PATIENT

DRUGS (1)
  1. BELANTAMAB MAFODOTIN [Suspect]
     Active Substance: BELANTAMAB MAFODOTIN
     Indication: Plasma cell myeloma
     Dosage: UNK
     Dates: start: 20220120

REACTIONS (9)
  - Punctate keratitis [Unknown]
  - Corneal opacity [Unknown]
  - Keratopathy [Unknown]
  - Visual acuity reduced [Unknown]
  - Eye disorder [Unknown]
  - Refraction disorder [Unknown]
  - Night blindness [Unknown]
  - Dry eye [Unknown]
  - Foreign body sensation in eyes [Unknown]

NARRATIVE: CASE EVENT DATE: 20220101
